FAERS Safety Report 21391055 (Version 1)
Quarter: 2022Q3

REPORT INFORMATION
  Report Type: Spontaneous
  Country: US (occurrence: None)
  Receive Date: 20220927
  Receipt Date: 20220927
  Transmission Date: 20221027
  Serious: Yes (Hospitalization)
  Sender: FDA-Public Use
  Company Number: None

PATIENT
  Age: 64 Year
  Sex: Male
  Weight: 85.5 kg

DRUGS (3)
  1. BRILINTA [Suspect]
     Active Substance: TICAGRELOR
     Indication: Coronary artery disease
     Dosage: FREQUENCY : TWICE A DAY;?
     Route: 048
     Dates: start: 20210921, end: 20220923
  2. ASPIRIN [Concomitant]
     Active Substance: ASPIRIN
  3. DESCOVY [Concomitant]
     Active Substance: EMTRICITABINE\TENOFOVIR ALAFENAMIDE FUMARATE

REACTIONS (13)
  - Internal haemorrhage [None]
  - Peripheral swelling [None]
  - Compartment syndrome [None]
  - Haematoma infection [None]
  - Fatigue [None]
  - Gastric haemorrhage [None]
  - Anaemia [None]
  - Cough [None]
  - Syphilis [None]
  - Infection reactivation [None]
  - Oesophagogastroduodenoscopy abnormal [None]
  - Rash vesicular [None]
  - Oesophageal candidiasis [None]

NARRATIVE: CASE EVENT DATE: 20220720
